FAERS Safety Report 11808311 (Version 2)
Quarter: 2016Q1

REPORT INFORMATION
  Report Type: Spontaneous
  Country: US (occurrence: US)
  Receive Date: 20151207
  Receipt Date: 20160105
  Transmission Date: 20160525
  Serious: No
  Sender: FDA-Public Use
  Company Number: US-GLAXOSMITHKLINE-US2015168051

PATIENT
  Age: 87 Year
  Sex: Female

DRUGS (2)
  1. ADVAIR DISKUS [Suspect]
     Active Substance: FLUTICASONE PROPIONATE\SALMETEROL XINAFOATE
     Indication: ASTHMA
     Dosage: 1 PUFF(S), UNK
     Route: 055
     Dates: start: 2000
  2. LISINOPRIL. [Concomitant]
     Active Substance: LISINOPRIL

REACTIONS (6)
  - Viral infection [Recovering/Resolving]
  - Fatigue [Unknown]
  - Malaise [Unknown]
  - Mobility decreased [Unknown]
  - Hypersomnia [Unknown]
  - Influenza [Unknown]

NARRATIVE: CASE EVENT DATE: 20151110
